FAERS Safety Report 20868122 (Version 1)
Quarter: 2022Q2

REPORT INFORMATION
  Report Type: Spontaneous
  Country: US (occurrence: US)
  Receive Date: 20220524
  Receipt Date: 20220524
  Transmission Date: 20220720
  Serious: No
  Sender: FDA-Public Use
  Company Number: US-GALDERMA-US2022006511

PATIENT

DRUGS (3)
  1. PROACTIV MD ADAPALENE ACNE TREATMENT [Suspect]
     Active Substance: ADAPALENE
     Indication: Rosacea
     Dosage: 1 DOSAGE FORM
     Route: 061
  2. Proactiv MD Ultra Gentle Cleanser [Concomitant]
     Indication: Rosacea
     Dosage: 1 DOSAGE FORM
     Route: 061
  3. Proactiv MD Ultra Hydrating Moisturizer [Concomitant]
     Indication: Rosacea
     Dosage: 1 DOSAGE FORM
     Route: 061

REACTIONS (2)
  - Product use in unapproved indication [Recovered/Resolved]
  - Drug ineffective for unapproved indication [Recovered/Resolved]
